FAERS Safety Report 4620795-1 (Version None)
Quarter: 2005Q1

REPORT INFORMATION
  Report Type: 
  Country: None (occurrence: None)
  Receive Date: 20050325
  Receipt Date: 20050321
  Transmission Date: 20050727
  Serious: Yes (Hospitalization)
  Sender: FDA-Public Use
  Company Number: CERZ-10810

PATIENT
  Age: 12 Year
  Sex: Male

DRUGS (1)
  1. CEREZYME [Suspect]
     Indication: GAUCHER'S DISEASE
     Dosage: 2400 UNITS Q2WKS IV
     Route: 042
     Dates: start: 19940101

REACTIONS (2)
  - ASEPTIC NECROSIS BONE [None]
  - OSTEOTOMY [None]
